FAERS Safety Report 4531571-2 (Version None)
Quarter: 2004Q4

REPORT INFORMATION
  Report Type: 
  Country: None (occurrence: None)
  Receive Date: 20041216
  Receipt Date: 20041203
  Transmission Date: 20050328
  Serious: Yes (Other)
  Sender: FDA-Public Use
  Company Number: S04-USA-07773-01

PATIENT
  Age: 53 Year
  Sex: Female

DRUGS (1)
  1. LEXAPRO [Suspect]
     Indication: ANXIETY
     Dosage: 10 MG QD PO
     Route: 048
     Dates: start: 20031201

REACTIONS (4)
  - COELIAC DISEASE [None]
  - IMPAIRED GASTRIC EMPTYING [None]
  - OESOPHAGEAL DYSPLASIA [None]
  - VOMITING [None]
